FAERS Safety Report 9926062 (Version 1)
Quarter: 2014Q1

REPORT INFORMATION
  Report Type: Spontaneous
  Country: BR (occurrence: BR)
  Receive Date: 20140226
  Receipt Date: 20140226
  Transmission Date: 20141002
  Serious: Yes (Hospitalization, Other)
  Sender: FDA-Public Use
  Company Number: BR-009507513-1402BRA012382

PATIENT
  Age: 51 Year
  Sex: Female

DRUGS (3)
  1. EMEND [Suspect]
     Dosage: UNK, CYCLICAL
     Route: 042
  2. DOXORUBICIN [Concomitant]
     Indication: CHEMOTHERAPY
     Dosage: UNK, UNKNOWN
  3. CYCLOPHOSPHAMIDE [Concomitant]
     Indication: CHEMOTHERAPY
     Dosage: UNK, UNKNOWN

REACTIONS (4)
  - Convulsion [Unknown]
  - Vertigo [Unknown]
  - Hyponatraemia [Unknown]
  - Insomnia [Unknown]
